FAERS Safety Report 19175623 (Version 4)
Quarter: 2021Q2

REPORT INFORMATION
  Report Type: Report from Study
  Country: CN (occurrence: CN)
  Receive Date: 20210423
  Receipt Date: 20210607
  Transmission Date: 20210717
  Serious: Yes (Death)
  Sender: FDA-Public Use
  Company Number: CN-PFIZER INC-2021435957

PATIENT
  Age: 63 Year
  Sex: Male
  Weight: 62 kg

DRUGS (10)
  1. FOLIC ACID. [Concomitant]
     Active Substance: FOLIC ACID
     Indication: ANAEMIA
     Dosage: 5 MG, 3X/DAY
     Dates: start: 20210213
  2. LEVOFLOXACIN HYDROCHLORIDE [Concomitant]
     Active Substance: LEVOFLOXACIN HYDROCHLORIDE
     Indication: PROPHYLAXIS
     Dosage: UNK DF
  3. BERBERINE [Concomitant]
     Active Substance: BERBERINE
     Dosage: 4 DF, 3X/DAY
     Dates: start: 20210210
  4. SUTENT [Suspect]
     Active Substance: SUNITINIB MALATE
     Indication: GASTROINTESTINAL STROMAL TUMOUR
     Dosage: 50 MG, 1X/DAY
     Route: 048
     Dates: start: 20210125, end: 20210220
  5. HUMALOG [Concomitant]
     Active Substance: INSULIN LISPRO
     Dosage: 34 IU, DAILY (16 UNITS AND 18 UNITS DAILY, RESPECTIVELY)
     Dates: start: 2017
  6. FERROUS SUCCINATE SODIUM CITRATE [Concomitant]
     Indication: ANAEMIA
     Dosage: 0.1 G, 3X/DAY
     Dates: start: 20210213
  7. CELECOXIB. [Concomitant]
     Active Substance: CELECOXIB
     Indication: ANKYLOSING SPONDYLITIS
     Dosage: 1 DF, 2X/DAY
     Dates: start: 20210218
  8. CLARITHROMYCIN. [Concomitant]
     Active Substance: CLARITHROMYCIN
     Indication: DIARRHOEA
     Dosage: 0.5 G, 3X/DAY
     Dates: start: 20210201
  9. SUTENT [Suspect]
     Active Substance: SUNITINIB MALATE
     Dosage: 37.5 MG, 1X/DAY
     Route: 048
     Dates: start: 20210317
  10. LEVOFLOXACIN HYDROCHLORIDE [Concomitant]
     Active Substance: LEVOFLOXACIN HYDROCHLORIDE
     Indication: PROPHYLAXIS
     Dosage: 1 DF, 3X/DAY
     Dates: start: 20210218

REACTIONS (1)
  - Thrombocytopenic purpura [Fatal]

NARRATIVE: CASE EVENT DATE: 20210331
